FAERS Safety Report 6289454-6 (Version None)
Quarter: 2009Q3

REPORT INFORMATION
  Report Type: 
  Country: None (occurrence: None)
  Receive Date: 20090728
  Receipt Date: 20090728
  Transmission Date: 20100115
  Serious: Yes (Other)
  Sender: FDA-Public Use
  Company Number: None

PATIENT
  Age: 51 Year
  Sex: Female
  Weight: 83.0083 kg

DRUGS (2)
  1. CYMBALTA [Suspect]
     Indication: DEPRESSION
     Dosage: 60MG 1XDAILY PO
     Route: 048
     Dates: start: 20070201, end: 20090717
  2. CYMBALTA [Suspect]
     Indication: PAIN
     Dosage: 60MG 1XDAILY PO
     Route: 048
     Dates: start: 20070201, end: 20090717

REACTIONS (11)
  - CONDITION AGGRAVATED [None]
  - DIARRHOEA [None]
  - DRUG INEFFECTIVE [None]
  - EMOTIONAL DISORDER [None]
  - FEAR [None]
  - HEADACHE [None]
  - NAUSEA [None]
  - PARAESTHESIA [None]
  - VERTIGO [None]
  - VISUAL IMPAIRMENT [None]
  - WITHDRAWAL SYNDROME [None]
